FAERS Safety Report 4763754-0 (Version None)
Quarter: 2005Q3

REPORT INFORMATION
  Report Type: 
  Country: None (occurrence: None)
  Receive Date: 20050908
  Receipt Date: 20050411
  Transmission Date: 20060218
  Serious: Yes (Hospitalization)
  Sender: FDA-Public Use
  Company Number: PHEH2005US04315

PATIENT
  Age: 52 Year
  Sex: Female

DRUGS (4)
  1. GLEEVEC [Suspect]
     Indication: CHRONIC MYELOID LEUKAEMIA
     Dosage: 400 MG, QD
     Route: 048
     Dates: start: 20030501
  2. GLEEVEC [Suspect]
     Dosage: 600 MG, QD
     Route: 048
     Dates: start: 20030501
  3. GLEEVEC [Suspect]
     Dosage: 800 MG, QD
     Route: 048
     Dates: start: 20040701, end: 20050301
  4. GLEEVEC [Suspect]
     Dosage: 600 MG, QD
     Route: 048
     Dates: start: 20050301, end: 20050301

REACTIONS (28)
  - ABDOMINAL PAIN [None]
  - ALLERGIC SINUSITIS [None]
  - ANAEMIA [None]
  - ASCITES [None]
  - ATRIAL FIBRILLATION [None]
  - BLEPHARITIS [None]
  - BRONCHIOLITIS [None]
  - BRONCHITIS [None]
  - CONJUNCTIVITIS [None]
  - COUGH [None]
  - DIARRHOEA [None]
  - DRUG EFFECT DECREASED [None]
  - DYSPNOEA [None]
  - FATIGUE [None]
  - HYPERGLOBULINAEMIA [None]
  - LICHEN PLANUS [None]
  - PERICARDIAL EFFUSION [None]
  - PERICARDIAL RUB [None]
  - PERICARDITIS [None]
  - PERIORBITAL OEDEMA [None]
  - PLEURAL EFFUSION [None]
  - PLEURITIC PAIN [None]
  - POLYSEROSITIS [None]
  - PYREXIA [None]
  - RASH MACULO-PAPULAR [None]
  - SINUS CONGESTION [None]
  - TRANSAMINASES INCREASED [None]
  - WHEEZING [None]
